FAERS Safety Report 20389951 (Version 1)
Quarter: 2022Q1

REPORT INFORMATION
  Report Type: Spontaneous
  Country: CA (occurrence: CA)
  Receive Date: 20220128
  Receipt Date: 20220128
  Transmission Date: 20220424
  Serious: Yes (Hospitalization)
  Sender: FDA-Public Use
  Company Number: CA-JNJFOC-20220142677

PATIENT
  Age: 33 Year
  Sex: Female

DRUGS (15)
  1. REMICADE [Suspect]
     Active Substance: INFLIXIMAB
     Indication: Crohn^s disease
     Route: 042
  2. ARIPIPRAZOLE [Concomitant]
     Active Substance: ARIPIPRAZOLE
     Route: 065
  3. BENZTROPINE [Concomitant]
     Active Substance: BENZTROPINE
  4. BUDESONIDE [Concomitant]
     Active Substance: BUDESONIDE
  5. CLONAZEPAM [Concomitant]
     Active Substance: CLONAZEPAM
  6. HERBALS\TURMERIC [Concomitant]
     Active Substance: HERBALS\TURMERIC
  7. CYMBALTA [Concomitant]
     Active Substance: DULOXETINE HYDROCHLORIDE
  8. LATUDA [Concomitant]
     Active Substance: LURASIDONE HYDROCHLORIDE
  9. DIETARY SUPPLEMENT\HERBALS\MILK THISTLE [Concomitant]
     Active Substance: DIETARY SUPPLEMENT\HERBALS\MILK THISTLE
  10. PREDNISONE [Concomitant]
     Active Substance: PREDNISONE
  11. SULFASALAZINE [Concomitant]
     Active Substance: SULFASALAZINE
  12. TRAMADOL [Concomitant]
     Active Substance: TRAMADOL
  13. DIVALPROEX SODIUM [Concomitant]
     Active Substance: DIVALPROEX SODIUM
  14. VITAMIN C [Concomitant]
     Active Substance: ASCORBIC ACID
  15. ZOPICLONE [Concomitant]
     Active Substance: ZOPICLONE

REACTIONS (13)
  - Musculoskeletal stiffness [Unknown]
  - Nasal congestion [Unknown]
  - Fall [Unknown]
  - Nasopharyngitis [Unknown]
  - Cough [Unknown]
  - Leukaemia [Unknown]
  - Blood pressure fluctuation [Unknown]
  - Arthralgia [Unknown]
  - Influenza [Unknown]
  - Condition aggravated [Unknown]
  - Intentional product use issue [Unknown]
  - Inappropriate schedule of product administration [Unknown]
  - Off label use [Unknown]
